FAERS Safety Report 8398341-9 (Version None)
Quarter: 2012Q2

REPORT INFORMATION
  Report Type: 
  Country: None (occurrence: None)
  Receive Date: 20120323
  Receipt Date: 20110330
  Transmission Date: 20120825
  Serious: Yes (Disabling, Other)
  Sender: FDA-Public Use
  Company Number: 163-21880-10121126

PATIENT
  Age: 80 Year
  Sex: Female

DRUGS (9)
  1. ATENOLOL [Concomitant]
  2. ZITHROMAX [Concomitant]
  3. LASIX [Concomitant]
  4. ALBUTEROL [Concomitant]
  5. ROCEPHIN [Concomitant]
  6. REVLIMID [Suspect]
     Indication: MYELODYSPLASTIC SYNDROME
     Dosage: 10 MG, DAILY, PO ; 5 MG, DAILY, PO ; 5 MG, QOD, PO
     Route: 048
     Dates: start: 20100503, end: 20100615
  7. REVLIMID [Suspect]
     Indication: MYELODYSPLASTIC SYNDROME
     Dosage: 10 MG, DAILY, PO ; 5 MG, DAILY, PO ; 5 MG, QOD, PO
     Route: 048
     Dates: start: 20100412, end: 20100427
  8. REVLIMID [Suspect]
     Indication: MYELODYSPLASTIC SYNDROME
     Dosage: 10 MG, DAILY, PO ; 5 MG, DAILY, PO ; 5 MG, QOD, PO
     Route: 048
     Dates: start: 20100706, end: 20101213
  9. NORVASC [Concomitant]

REACTIONS (5)
  - DRUG INEFFECTIVE [None]
  - ACUTE MYELOID LEUKAEMIA [None]
  - SENSATION OF HEAVINESS [None]
  - DYSPNOEA [None]
  - MYELODYSPLASTIC SYNDROME TRANSFORMATION [None]
